FAERS Safety Report 9095618 (Version 5)
Quarter: 2013Q2

REPORT INFORMATION
  Report Type: Report from Study
  Country: DE (occurrence: DE)
  Receive Date: 20130219
  Receipt Date: 20130417
  Transmission Date: 20140414
  Serious: Yes (Other)
  Sender: FDA-Public Use
  Company Number: DE-TEVA-387357USA

PATIENT
  Age: 74 Year
  Sex: Male

DRUGS (2)
  1. TREANDA [Suspect]
     Indication: CHRONIC LYMPHOCYTIC LEUKAEMIA
     Dosage: UID/QD
     Dates: start: 20130108, end: 20130109
  2. RITUXIMAB [Concomitant]
     Dates: start: 20130107, end: 20130107

REACTIONS (3)
  - Cardiac disorder [Recovered/Resolved]
  - Dyspnoea [Unknown]
  - Rash [Unknown]
